FAERS Safety Report 16790965 (Version 1)
Quarter: 2019Q3

REPORT INFORMATION
  Report Type: Spontaneous
  Country: FR (occurrence: FR)
  Receive Date: 20190910
  Receipt Date: 20190910
  Transmission Date: 20191005
  Serious: Yes (Life-Threatening, Other)
  Sender: FDA-Public Use
  Company Number: FR-PFIZER INC-2019388275

PATIENT
  Age: 16 Year
  Sex: Male
  Weight: 51 kg

DRUGS (6)
  1. IBUPROFEN. [Suspect]
     Active Substance: IBUPROFEN
     Dosage: 12 G, UNK
     Route: 048
     Dates: start: 20190820, end: 20190820
  2. LOXAPAC [LOXAPINE SUCCINATE] [Suspect]
     Active Substance: LOXAPINE SUCCINATE
     Dosage: 500 MG, UNK
     Route: 048
     Dates: start: 20190820, end: 20190820
  3. DEPAKOTE [Suspect]
     Active Substance: DIVALPROEX SODIUM
     Dosage: 10 G, UNK
     Route: 048
     Dates: start: 20190820, end: 20190820
  4. SERTRALINE HCL [Suspect]
     Active Substance: SERTRALINE HYDROCHLORIDE
     Dosage: 1350 MG, UNK
     Route: 048
     Dates: start: 20190820, end: 20190820
  5. RISPERIDONE. [Suspect]
     Active Substance: RISPERIDONE
     Dosage: 100 MG, UNK
     Route: 048
     Dates: start: 20190820, end: 20190820
  6. BROMAZEPAM [Suspect]
     Active Substance: BROMAZEPAM
     Dosage: UNK
     Route: 048
     Dates: start: 20190820, end: 20190820

REACTIONS (6)
  - Hypothermia [Recovered/Resolved]
  - Toxicity to various agents [Recovered/Resolved]
  - Shock [Recovered/Resolved with Sequelae]
  - Lactic acidosis [Recovered/Resolved with Sequelae]
  - Coma [Recovered/Resolved]
  - Miosis [Recovered/Resolved]

NARRATIVE: CASE EVENT DATE: 20190820
